FAERS Safety Report 15062050 (Version 2)
Quarter: 2018Q4

REPORT INFORMATION
  Report Type: Report from Study
  Country: US (occurrence: US)
  Receive Date: 20180625
  Receipt Date: 20181009
  Transmission Date: 20190204
  Serious: Yes (Life-Threatening, Hospitalization, Other)
  Sender: FDA-Public Use
  Company Number: US-BRISTOL-MYERS SQUIBB COMPANY-BMS-2018-057416

PATIENT
  Age: 50 Year
  Sex: Male
  Weight: 73.3 kg

DRUGS (2)
  1. IPILIMUMAB [Suspect]
     Active Substance: IPILIMUMAB
     Indication: CHOLANGIOCARCINOMA
     Dosage: 1 MG/KG, FOR 30 MIN DAY 1 EVERY 3RD CYCLE FOR EVERY 2 WEEKS
     Route: 042
     Dates: start: 20180511
  2. NIVOLUMAB [Suspect]
     Active Substance: NIVOLUMAB
     Indication: CHOLANGIOCARCINOMA
     Dosage: 240 MG, FOR 30 MIN DAY 1 FOR  Q2WK
     Route: 042
     Dates: start: 20180511

REACTIONS (2)
  - Encephalitis autoimmune [Recovered/Resolved]
  - Hepatitis [Recovered/Resolved]

NARRATIVE: CASE EVENT DATE: 20180613
